FAERS Safety Report 18934999 (Version 1)
Quarter: 2021Q1

REPORT INFORMATION
  Report Type: Spontaneous
  Country: US (occurrence: US)
  Receive Date: 20210224
  Receipt Date: 20210224
  Transmission Date: 20210420
  Serious: No
  Sender: FDA-Public Use
  Company Number: US-BAYER-2021-080594

PATIENT
  Age: 13 Year
  Sex: Female

DRUGS (1)
  1. MIDOL EXTENDED RELIEF [Suspect]
     Active Substance: NAPROXEN SODIUM
     Dosage: 13 OR 14 PILLS
     Route: 048

REACTIONS (1)
  - Extra dose administered [Unknown]

NARRATIVE: CASE EVENT DATE: 20210223
